FAERS Safety Report 6857029-3 (Version None)
Quarter: 2010Q3

REPORT INFORMATION
  Report Type: 
  Country: None (occurrence: None)
  Receive Date: 20100719
  Receipt Date: 20100708
  Transmission Date: 20110219
  Serious: Yes (Other)
  Sender: FDA-Public Use
  Company Number: A0870738A

PATIENT
  Sex: Female

DRUGS (1)
  1. AVANDIA [Suspect]
     Indication: DIABETES MELLITUS
     Dosage: 4MG TWICE PER DAY
     Route: 048
     Dates: start: 20030101, end: 20071116

REACTIONS (9)
  - BACK PAIN [None]
  - CHEST PAIN [None]
  - FALL [None]
  - FRACTURE [None]
  - LOWER LIMB FRACTURE [None]
  - PAIN [None]
  - PALPITATIONS [None]
  - SWELLING [None]
  - WEIGHT INCREASED [None]
